FAERS Safety Report 9228180 (Version 2)
Quarter: 2013Q2

REPORT INFORMATION
  Report Type: Spontaneous
  Country: DE (occurrence: DE)
  Receive Date: 20130412
  Receipt Date: 20130524
  Transmission Date: 20140414
  Serious: Yes (Other)
  Sender: FDA-Public Use
  Company Number: DE-ROCHE-1210897

PATIENT
  Age: 33 Year
  Sex: Female

DRUGS (4)
  1. ACTILYSE [Suspect]
     Indication: THROMBOSIS
     Route: 042
  2. WARFARIN [Suspect]
     Indication: THROMBOSIS
     Route: 065
  3. FRAXIPARINE [Concomitant]
     Route: 058
  4. HEPARIN [Concomitant]

REACTIONS (2)
  - Angina pectoris [Recovered/Resolved]
  - Exposure during pregnancy [Unknown]
